FAERS Safety Report 20476446 (Version 1)
Quarter: 2022Q1

REPORT INFORMATION
  Report Type: Spontaneous
  Country: US (occurrence: US)
  Receive Date: 20220215
  Receipt Date: 20220215
  Transmission Date: 20220424
  Serious: No
  Sender: FDA-Public Use
  Company Number: US-La Jolla Pharmaceutical-2021TP000011

PATIENT

DRUGS (2)
  1. XERAVA [Suspect]
     Active Substance: ERAVACYCLINE DIHYDROCHLORIDE
     Indication: Mycobacterial infection
     Route: 042
  2. NUZYRA [Suspect]
     Active Substance: OMADACYCLINE
     Indication: Mycobacterial infection

REACTIONS (2)
  - Tooth discolouration [Recovered/Resolved]
  - Off label use [Unknown]
